FAERS Safety Report 5697790-7 (Version None)
Quarter: 2008Q2

REPORT INFORMATION
  Report Type: 
  Country: None (occurrence: None)
  Receive Date: 20080408
  Receipt Date: 20080403
  Transmission Date: 20081010
  Serious: Yes (Hospitalization)
  Sender: FDA-Public Use
  Company Number: JP-MERCK-0804USA01198

PATIENT

DRUGS (2)
  1. COZAAR [Suspect]
     Indication: HYPERTENSION
     Route: 048
  2. CALBLOCK [Concomitant]
     Indication: HYPERTENSION
     Route: 048

REACTIONS (1)
  - ATRIOVENTRICULAR BLOCK [None]
